FAERS Safety Report 13554850 (Version 1)
Quarter: 2017Q2

REPORT INFORMATION
  Report Type: Spontaneous
  Country: US (occurrence: US)
  Receive Date: 20170516
  Receipt Date: 20170516
  Transmission Date: 20170830
  Serious: No
  Sender: FDA-Public Use
  Company Number: None

PATIENT
  Age: 58 Year
  Sex: Male
  Weight: 131.1 kg

DRUGS (1)
  1. PENICILLIN [Suspect]
     Active Substance: PENICILLIN
     Dates: start: 20160517, end: 20160524

REACTIONS (1)
  - Rash [None]

NARRATIVE: CASE EVENT DATE: 20160525
